FAERS Safety Report 16169488 (Version 1)
Quarter: 2019Q2

REPORT INFORMATION
  Report Type: Spontaneous
  Country: US (occurrence: US)
  Receive Date: 20190405
  Receipt Date: 20190405
  Transmission Date: 20190711
  Serious: No
  Sender: FDA-Public Use
  Company Number: None

PATIENT
  Age: 27 Year
  Sex: Female
  Weight: 47.25 kg

DRUGS (5)
  1. TRINTELLIX [Suspect]
     Active Substance: VORTIOXETINE HYDROBROMIDE
     Indication: ANXIETY
     Dosage: ?          QUANTITY:30 TABLET(S);?
     Route: 048
     Dates: start: 20190325, end: 20190404
  2. TRINTELLIX [Suspect]
     Active Substance: VORTIOXETINE HYDROBROMIDE
     Indication: DEPRESSION
     Dosage: ?          QUANTITY:30 TABLET(S);?
     Route: 048
     Dates: start: 20190325, end: 20190404
  3. AMPHETAMINE/DEXTROAMPHETAMINE [Concomitant]
     Active Substance: AMPHETAMINE\DEXTROAMPHETAMINE
  4. NORETHINDRONE ACETATE. [Concomitant]
     Active Substance: NORETHINDRONE ACETATE
  5. ETHINYL ESTRADIOL [Concomitant]
     Active Substance: ETHINYL ESTRADIOL

REACTIONS (5)
  - Dry mouth [None]
  - Impaired quality of life [None]
  - Abdominal distension [None]
  - Dysgeusia [None]
  - Nausea [None]

NARRATIVE: CASE EVENT DATE: 20190403
